FAERS Safety Report 9942031 (Version 1)
Quarter: 2014Q1

REPORT INFORMATION
  Report Type: Report from Study
  Country: US (occurrence: US)
  Receive Date: 20140303
  Receipt Date: 20140303
  Transmission Date: 20141002
  Serious: No
  Sender: FDA-Public Use
  Company Number: US-ABBVIE-13P-163-1043609-00

PATIENT
  Age: 20 Year
  Sex: Male

DRUGS (4)
  1. HUMIRA [Suspect]
     Indication: PSORIASIS
     Dates: start: 20130128, end: 20130128
  2. HUMIRA [Suspect]
  3. LEVOTHYROXINE [Concomitant]
     Indication: THYROID DISORDER
  4. CLINDAMYCIN [Concomitant]
     Indication: PRODUCT USED FOR UNKNOWN INDICATION
     Dosage: FOR 3.5 MORE DAYS

REACTIONS (1)
  - Fatigue [Not Recovered/Not Resolved]
